FAERS Safety Report 16405971 (Version 1)
Quarter: 2019Q2

REPORT INFORMATION
  Report Type: Spontaneous
  Country: US (occurrence: US)
  Receive Date: 20190607
  Receipt Date: 20190607
  Transmission Date: 20190711
  Serious: Yes (Hospitalization, Other)
  Sender: FDA-Public Use
  Company Number: US-BRISTOL-MYERS SQUIBB COMPANY-BMS-2019-054513

PATIENT
  Age: 51 Year
  Sex: Male
  Weight: 72.57 kg

DRUGS (3)
  1. ELIQUIS [Suspect]
     Active Substance: APIXABAN
     Indication: PRODUCT USED FOR UNKNOWN INDICATION
     Dosage: UNK
     Route: 065
     Dates: start: 201903, end: 201903
  2. LYRICA [Suspect]
     Active Substance: PREGABALIN
     Indication: STRESS
     Dosage: 75 MILLIGRAM, BID
     Route: 048
  3. LYRICA [Suspect]
     Active Substance: PREGABALIN
     Indication: GASTRIC DISORDER
     Route: 065

REACTIONS (5)
  - Haematemesis [Recovered/Resolved]
  - Internal haemorrhage [Not Recovered/Not Resolved]
  - Thrombosis [Unknown]
  - Dyspepsia [Unknown]
  - Pancreatic cyst [Not Recovered/Not Resolved]

NARRATIVE: CASE EVENT DATE: 20190430
